FAERS Safety Report 5116965-9 (Version None)
Quarter: 2006Q3

REPORT INFORMATION
  Report Type: 
  Country: None (occurrence: None)
  Receive Date: 20060925
  Receipt Date: 20060919
  Transmission Date: 20061208
  Serious: Yes (Death, Life-Threatening)
  Sender: FDA-Public Use
  Company Number: 2006-143422-NL

PATIENT
  Age: 36 Year
  Sex: Male

DRUGS (7)
  1. DANAPAROID SODIUM [Suspect]
     Indication: DISSEMINATED INTRAVASCULAR COAGULATION
     Dosage: INTRAVENOUS DRIP
     Route: 041
     Dates: start: 20051206, end: 20051208
  2. ANTITHROMBIN III [Concomitant]
  3. ULINASTATIN [Concomitant]
  4. CILASTATIN W/IMIPENEM [Concomitant]
  5. NAFAMOSTAT MESILATE [Concomitant]
  6. HYDROCORTISONE SODIUM PHOSPHATE [Concomitant]
  7. IMMUNE GLOBULIN INTRAVENOUS (HUMAN) [Concomitant]

REACTIONS (7)
  - CONDITION AGGRAVATED [None]
  - DISSEMINATED INTRAVASCULAR COAGULATION [None]
  - HAEMOLYTIC ANAEMIA [None]
  - HEPATIC FUNCTION ABNORMAL [None]
  - MULTI-ORGAN FAILURE [None]
  - PANCREATITIS ACUTE [None]
  - SEPSIS [None]
